FAERS Safety Report 10683901 (Version 1)
Quarter: 2014Q4

REPORT INFORMATION
  Report Type: Spontaneous
  Country: US (occurrence: US)
  Receive Date: 20141230
  Receipt Date: 20141230
  Transmission Date: 20150529
  Serious: Yes (Other)
  Sender: FDA-Public Use
  Company Number: US-BRISTOL-MYERS SQUIBB COMPANY-BMS-2014-003327

PATIENT
  Sex: Female

DRUGS (2)
  1. BYDUREON [Suspect]
     Active Substance: EXENATIDE
     Indication: TYPE 1 DIABETES MELLITUS
     Dosage: 2 MG, QWK
     Route: 058
  2. NOVOLOG [Suspect]
     Active Substance: INSULIN ASPART
     Indication: TYPE 1 DIABETES MELLITUS
     Dosage: 32 UNIT, UNK
     Route: 058

REACTIONS (3)
  - Dyspepsia [Unknown]
  - Vomiting [Unknown]
  - Off label use [Unknown]
